FAERS Safety Report 22021855 (Version 1)
Quarter: 2023Q1

REPORT INFORMATION
  Report Type: Spontaneous
  Country: US (occurrence: None)
  Receive Date: 20230218
  Receipt Date: 20230218
  Transmission Date: 20230417
  Serious: Yes (Hospitalization)
  Sender: FDA-Public Use
  Company Number: None

PATIENT
  Age: 25 Year
  Sex: Male
  Weight: 141.3 kg

DRUGS (1)
  1. HYDROCHLOROTHIAZIDE\LISINOPRIL [Suspect]
     Active Substance: HYDROCHLOROTHIAZIDE\LISINOPRIL
     Indication: Hypertension
     Dosage: OTHER QUANTITY : 1 TABLET(S);?
     Route: 048
     Dates: start: 20230117, end: 20230206

REACTIONS (12)
  - Mania [None]
  - Anxiety [None]
  - Insomnia [None]
  - Pyrexia [None]
  - Tremor [None]
  - Chills [None]
  - Dyspepsia [None]
  - Decreased appetite [None]
  - Oliguria [None]
  - Diarrhoea [None]
  - Burning sensation [None]
  - Blood potassium decreased [None]

NARRATIVE: CASE EVENT DATE: 20230131
